FAERS Safety Report 5004492-9 (Version None)
Quarter: 2006Q2

REPORT INFORMATION
  Report Type: 
  Country: None (occurrence: None)
  Receive Date: 20060511
  Receipt Date: 20060501
  Transmission Date: 20061013
  Serious: Yes (Hospitalization)
  Sender: FDA-Public Use
  Company Number: 2005113751

PATIENT
  Age: 101 Year
  Sex: Female
  Weight: 72.5755 kg

DRUGS (3)
  1. DETROL LA [Suspect]
     Indication: NOCTURIA
     Dosage: 2 MG (2 MG, 1 IN 1 D), ORAL
     Route: 048
     Dates: start: 20020101
  2. GLUCOSAMINE W/CHONDROITIN SULFATES (ASCORBIC ACID, CHRONDROITIN SULFAT [Concomitant]
  3. ACETAMINOPHEN [Concomitant]

REACTIONS (5)
  - ABDOMINAL PAIN [None]
  - DRUG INEFFECTIVE [None]
  - FATIGUE [None]
  - GASTROINTESTINAL NEOPLASM [None]
  - NOCTURIA [None]
